FAERS Safety Report 9611576 (Version 3)
Quarter: 2014Q1

REPORT INFORMATION
  Report Type: Report from Study
  Country: US (occurrence: US)
  Receive Date: 20131010
  Receipt Date: 20140110
  Transmission Date: 20141002
  Serious: Yes (Death, Hospitalization)
  Sender: FDA-Public Use
  Company Number: PHEH2013US019796

PATIENT
  Age: 50 Year
  Sex: Male

DRUGS (2)
  1. AFINITOR [Suspect]
     Indication: COLON CANCER
     Dosage: 10 MG, QD
     Route: 048
     Dates: start: 20130610
  2. AFINITOR [Suspect]
     Indication: OFF LABEL USE
     Dosage: 5 MG, DAILY
     Route: 048
     Dates: end: 201307

REACTIONS (3)
  - Malignant neoplasm progression [Fatal]
  - Metastases to liver [Fatal]
  - Stomatitis [Unknown]
